FAERS Safety Report 7122793-5 (Version None)
Quarter: 2010Q4

REPORT INFORMATION
  Report Type: 
  Country: None (occurrence: None)
  Receive Date: 20101124
  Receipt Date: 20101112
  Transmission Date: 20110411
  Serious: Yes (Hospitalization)
  Sender: FDA-Public Use
  Company Number: DE-AMGEN-DEUNI2010003311

PATIENT

DRUGS (6)
  1. DARBEPOETIN ALFA [Suspect]
     Indication: RENAL FAILURE CHRONIC
     Dosage: UNK UNK, QWK
     Route: 042
     Dates: start: 20040827
  2. VALTREX [Concomitant]
  3. BUDENOFALK [Concomitant]
     Dosage: 3 MG, UNK
  4. DECORTIN [Concomitant]
     Dosage: 5 MG, UNK
  5. ROCALTROL [Concomitant]
  6. FERRLECIT                          /00345601/ [Concomitant]
     Dosage: 80 MG, UNK

REACTIONS (2)
  - DEHYDRATION [None]
  - HERPES ZOSTER [None]
